FAERS Safety Report 8803523 (Version 1)
Quarter: 2012Q4

REPORT INFORMATION
  Report Type: 
  Country: US (occurrence: US)
  Receive Date: 20120924
  Receipt Date: 20120924
  Transmission Date: 20130627
  Serious: Yes (Hospitalization)
  Sender: FDA-Public Use
  Company Number: US-PAR PHARMACEUTICAL, INC-2012SCPR004624

PATIENT

DRUGS (4)
  1. FLUOXETINE [Suspect]
     Indication: PRODUCT USED FOR UNKNOWN INDICATION
     Dosage: UNK, Unknown
     Route: 065
  2. FLUOXETINE [Interacting]
     Dosage: 20 mg, qd
     Route: 065
  3. DONEPEZIL [Interacting]
     Indication: PRODUCT USED FOR UNKNOWN INDICATION
     Dosage: UNK, Unknown
     Route: 065
  4. DONEPEZIL [Interacting]
     Dosage: 10 mg, HS
     Route: 065

REACTIONS (3)
  - Drug interaction [Unknown]
  - Cholinergic syndrome [Recovering/Resolving]
  - Abnormal behaviour [Recovering/Resolving]
